FAERS Safety Report 9398038 (Version 3)
Quarter: 2014Q1

REPORT INFORMATION
  Report Type: Spontaneous
  Country: US (occurrence: US)
  Receive Date: 20130712
  Receipt Date: 20140311
  Transmission Date: 20141002
  Serious: Yes (Hospitalization)
  Sender: FDA-Public Use
  Company Number: US-GLAXOSMITHKLINE-A1032247A

PATIENT
  Age: 35 Year
  Sex: Female
  Weight: 79.1 kg

DRUGS (1)
  1. AVANDIA [Suspect]
     Indication: DIABETES MELLITUS
     Route: 048
     Dates: start: 2003, end: 2010

REACTIONS (4)
  - Ischaemic cardiomyopathy [Unknown]
  - Implantable defibrillator insertion [Unknown]
  - Cardiac failure congestive [Unknown]
  - Arrhythmia [Unknown]
